FAERS Safety Report 22936641 (Version 2)
Quarter: 2023Q4

REPORT INFORMATION
  Report Type: Report from Study
  Country: US (occurrence: US)
  Receive Date: 20230912
  Receipt Date: 20231012
  Transmission Date: 20240110
  Serious: Yes (Other)
  Sender: FDA-Public Use
  Company Number: US-BAYER-2023A116630

PATIENT
  Age: 65 Year
  Sex: Male

DRUGS (3)
  1. NUBEQA [Suspect]
     Active Substance: DAROLUTAMIDE
     Indication: Prostate cancer
     Dosage: 600 MG, BID
     Route: 048
  2. ZITHROMAX [Concomitant]
     Active Substance: AZITHROMYCIN DIHYDRATE
     Dosage: UNK
  3. COUGH SYRUP E [Concomitant]
     Dosage: UNK

REACTIONS (10)
  - Hallucination [None]
  - Blood alkaline phosphatase increased [None]
  - Confusional state [None]
  - Abnormal dreams [None]
  - Sleep talking [None]
  - Arthralgia [None]
  - Diarrhoea [Not Recovered/Not Resolved]
  - Peripheral swelling [Not Recovered/Not Resolved]
  - Diarrhoea [Recovering/Resolving]
  - Peripheral swelling [Recovering/Resolving]
